FAERS Safety Report 8170635-1 (Version None)
Quarter: 2012Q1

REPORT INFORMATION
  Report Type: 
  Country: None (occurrence: None)
  Receive Date: 20120106
  Receipt Date: 20111012
  Transmission Date: 20120608
  Serious: Yes (Other)
  Sender: FDA-Public Use
  Company Number: US-006835

PATIENT
  Age: 48 Year
  Sex: Female
  Weight: 82 kg

DRUGS (3)
  1. MULTIHANCE [Suspect]
     Indication: NUCLEAR MAGNETIC RESONANCE IMAGING BRAIN
     Dosage: 18ML INTRAVENOUS (NOT OTHERWISE SPECIFIED)
     Route: 042
     Dates: start: 20110923, end: 20110923
  2. MULTIHANCE [Suspect]
     Indication: LOSS OF CONSCIOUSNESS
     Dosage: 18ML INTRAVENOUS (NOT OTHERWISE SPECIFIED)
     Route: 042
     Dates: start: 20110923, end: 20110923
  3. MULTIHANCE [Suspect]
     Indication: URINARY INCONTINENCE
     Dosage: 18ML INTRAVENOUS (NOT OTHERWISE SPECIFIED)
     Route: 042
     Dates: start: 20110923, end: 20110923

REACTIONS (1)
  - CONTRAST MEDIA REACTION [None]
